FAERS Safety Report 10083944 (Version 1)
Quarter: 2014Q2

REPORT INFORMATION
  Report Type: Spontaneous
  Country: US (occurrence: US)
  Receive Date: 20140417
  Receipt Date: 20140417
  Transmission Date: 20141212
  Serious: Yes (Hospitalization, Other)
  Sender: FDA-Public Use
  Company Number: US-BAYER-2014-057284

PATIENT
  Age: 45 Year
  Sex: Female

DRUGS (17)
  1. YAZ [Suspect]
  2. YASMIN [Suspect]
  3. OCELLA [Suspect]
  4. AMBIEN [Concomitant]
  5. ASPIRIN [Concomitant]
  6. CARAFATE [Concomitant]
  7. CRESTOR [Concomitant]
  8. FLEXERIL [Concomitant]
  9. LOPRESSOR [Concomitant]
  10. LOTREL [Concomitant]
  11. MAGNESIUM [Concomitant]
  12. POTASSIUM CHLORIDE [Concomitant]
  13. ZETIA [Concomitant]
  14. TRAMADOL [Concomitant]
  15. AMITRIPTYLINE [Concomitant]
  16. VISTARIL [Concomitant]
  17. GABAPENTIN [Concomitant]

REACTIONS (8)
  - Deep vein thrombosis [None]
  - Pulmonary embolism [None]
  - Thrombosis [None]
  - Cerebrovascular accident [None]
  - Emotional distress [None]
  - Pain [None]
  - Injury [None]
  - Pain [None]
